FAERS Safety Report 8293951-1 (Version None)
Quarter: 2012Q2

REPORT INFORMATION
  Report Type: 
  Country: None (occurrence: None)
  Receive Date: 20120418
  Receipt Date: 20120410
  Transmission Date: 20120825
  Serious: Yes (Hospitalization, Other)
  Sender: FDA-Public Use
  Company Number: US-BAYER-2011-076278

PATIENT
  Age: 17 Year
  Sex: Female
  Weight: 51.247 kg

DRUGS (6)
  1. YAZ [Suspect]
     Indication: CONTRACEPTION
  2. CIPROFLOXACIN HCL [Concomitant]
     Indication: KIDNEY INFECTION
     Dosage: UNK UNK, BID
  3. YAZ [Suspect]
     Indication: PREMENSTRUAL SYNDROME
     Dosage: UNK
     Dates: start: 20090101, end: 20100801
  4. ABILIFY [Concomitant]
     Indication: MENTAL DISORDER
     Dosage: 5 MG, QD
  5. IBUPROFEN [Concomitant]
     Dosage: 200 MG, UNK
  6. PROZAC [Concomitant]
     Indication: MENTAL DISORDER
     Dosage: UNK

REACTIONS (9)
  - INJURY [None]
  - GALLBLADDER DISORDER [None]
  - FEAR [None]
  - MYOCARDIAL INFARCTION [None]
  - DEEP VEIN THROMBOSIS [None]
  - PAIN [None]
  - MENTAL DISORDER [None]
  - PULMONARY EMBOLISM [None]
  - CEREBROVASCULAR ACCIDENT [None]
